FAERS Safety Report 10173218 (Version 1)
Quarter: 2014Q2

REPORT INFORMATION
  Report Type: Spontaneous
  Country: US (occurrence: None)
  Receive Date: 20140514
  Receipt Date: 20140514
  Transmission Date: 20141212
  Serious: Yes (Hospitalization)
  Sender: FDA-Public Use
  Company Number: None

PATIENT
  Age: 91 Year
  Sex: Female
  Weight: 50 kg

DRUGS (1)
  1. HALDOL [Suspect]
     Indication: AGITATION
     Dosage: 2 OVER 24 HOURS INTO A VEIN
     Route: 042
     Dates: start: 20140503, end: 20140504

REACTIONS (6)
  - Drooling [None]
  - Tremor [None]
  - Gait disturbance [None]
  - Dysphagia [None]
  - Heart rate irregular [None]
  - Dysarthria [None]
